FAERS Safety Report 6157832-1 (Version None)
Quarter: 2009Q2

REPORT INFORMATION
  Report Type: 
  Country: None (occurrence: None)
  Receive Date: 20090414
  Receipt Date: 20090402
  Transmission Date: 20091009
  Serious: Yes (Other)
  Sender: FDA-Public Use
  Company Number: 2009AL001807

PATIENT
  Age: 69 Year
  Sex: Female

DRUGS (10)
  1. LIDOCAINE HYDROCHLORIDE 2% [Suspect]
     Indication: FACIAL PAIN
     Dosage: 5 PCT; QD; TOP
     Route: 061
     Dates: start: 20090106
  2. FENTANYL [Concomitant]
  3. LANSOPRAZOLE [Concomitant]
  4. TAMOXIFEN CITRATE [Concomitant]
  5. GABAPENTIN [Concomitant]
  6. BOTULINUM TOXIN TYPE A [Concomitant]
  7. LEVOTHYROXINE SODIUM [Concomitant]
  8. WARFARIN SODIUM [Concomitant]
  9. ATORVASTATIN [Concomitant]
  10. TIZANIDINE HCL [Concomitant]

REACTIONS (1)
  - DEAFNESS UNILATERAL [None]
